FAERS Safety Report 16415679 (Version 1)
Quarter: 2019Q2

REPORT INFORMATION
  Report Type: Spontaneous
  Country: US (occurrence: US)
  Receive Date: 20190611
  Receipt Date: 20190611
  Transmission Date: 20190711
  Serious: No
  Sender: FDA-Public Use
  Company Number: US-SA-2019SA155696

PATIENT
  Age: 21 Year
  Sex: Female

DRUGS (9)
  1. FIORICET [Concomitant]
     Active Substance: ACETAMINOPHEN\BUTALBITAL\CAFFEINE
  2. TRIAMCINOLON [TRIAMCINOLONE] [Concomitant]
  3. TOBRAMYCIN + DEXAMETHASONE [Concomitant]
     Active Substance: DEXAMETHASONE\TOBRAMYCIN
  4. PREDNISONE. [Concomitant]
     Active Substance: PREDNISONE
  5. PROTOPIC [Concomitant]
     Active Substance: TACROLIMUS
  6. MARLISSA [Concomitant]
     Active Substance: ETHINYL ESTRADIOL\LEVONORGESTREL
  7. GABAPENTIN. [Concomitant]
     Active Substance: GABAPENTIN
  8. DUPIXENT [Suspect]
     Active Substance: DUPILUMAB
     Indication: DERMATITIS ATOPIC
     Dosage: 300 MG, QOW
     Route: 058
     Dates: start: 20190326
  9. HYLATOPICPLUS [Concomitant]
     Active Substance: EMOLLIENTS

REACTIONS (1)
  - Dry eye [Not Recovered/Not Resolved]

NARRATIVE: CASE EVENT DATE: 201905
